FAERS Safety Report 6994115-1 (Version None)
Quarter: 2010Q3

REPORT INFORMATION
  Report Type: 
  Country: None (occurrence: None)
  Receive Date: 20100917
  Receipt Date: 20100628
  Transmission Date: 20110219
  Serious: No
  Sender: FDA-Public Use
  Company Number: US-ASTRAZENECA-2010SE30244

PATIENT
  Age: 856 Month
  Sex: Female
  Weight: 79.4 kg

DRUGS (4)
  1. SEROQUEL [Suspect]
     Indication: AMNESIA
     Route: 048
     Dates: start: 20090901, end: 20100301
  2. SEROQUEL [Suspect]
     Route: 048
     Dates: start: 20090901, end: 20100301
  3. ACTONEL [Concomitant]
     Route: 065
  4. PREMARIN [Concomitant]
     Route: 065

REACTIONS (3)
  - DRUG DOSE OMISSION [None]
  - FEELING ABNORMAL [None]
  - SOMNOLENCE [None]
